FAERS Safety Report 11878388 (Version 1)
Quarter: 2015Q4

REPORT INFORMATION
  Report Type: Spontaneous
  Country: US (occurrence: US)
  Receive Date: 20151230
  Receipt Date: 20151230
  Transmission Date: 20160305
  Serious: Yes (Other)
  Sender: FDA-Public Use
  Company Number: US-ACTAVIS-2015-28390

PATIENT
  Age: 94 Year
  Sex: Female

DRUGS (1)
  1. TAMOXIFEN (UNKNOWN) [Suspect]
     Active Substance: TAMOXIFEN
     Indication: BREAST CANCER RECURRENT
     Dosage: UNK, UNKNOWN
     Route: 065
     Dates: start: 20150803

REACTIONS (2)
  - Mass [Unknown]
  - Axillary mass [Unknown]

NARRATIVE: CASE EVENT DATE: 20151106
